FAERS Safety Report 25925760 (Version 1)
Quarter: 2025Q4

REPORT INFORMATION
  Report Type: Spontaneous
  Country: US (occurrence: US)
  Receive Date: 20251015
  Receipt Date: 20251015
  Transmission Date: 20260119
  Serious: No
  Sender: SANOFI AVENTIS
  Company Number: US-SA-2025SA306491

PATIENT
  Age: 40 Year
  Sex: Female

DRUGS (3)
  1. DUPIXENT [Suspect]
     Active Substance: DUPILUMAB
     Indication: Dermatitis atopic
     Dosage: 300 MG, QOW
     Route: 058
     Dates: start: 202201
  2. CLARITHROMYCIN [Suspect]
     Active Substance: CLARITHROMYCIN
  3. NITROFURANTOIN [Suspect]
     Active Substance: NITROFURANTOIN

REACTIONS (2)
  - Pain [Unknown]
  - Paraesthesia [Unknown]
